FAERS Safety Report 6054852-2 (Version None)
Quarter: 2009Q1

REPORT INFORMATION
  Report Type: 
  Country: None (occurrence: None)
  Receive Date: 20090128
  Receipt Date: 20090116
  Transmission Date: 20090719
  Serious: Yes (Death)
  Sender: FDA-Public Use
  Company Number: CO-PFIZER INC-2009157541

PATIENT

DRUGS (4)
  1. NORVASC [Suspect]
     Indication: HYPERTENSION
     Dosage: 1 MG, 2X/DAY
     Route: 048
     Dates: start: 19920101
  2. VASTAREL [Concomitant]
  3. ZOCOR [Concomitant]
  4. PLAVIX [Concomitant]

REACTIONS (1)
  - CARDIAC DISORDER [None]
